FAERS Safety Report 11627747 (Version 1)
Quarter: 2015Q4

REPORT INFORMATION
  Report Type: Spontaneous
  Country: US (occurrence: US)
  Receive Date: 20151014
  Receipt Date: 20151014
  Transmission Date: 20160304
  Serious: Yes (Other)
  Sender: FDA-Public Use
  Company Number: US-009507513-1510USA003642

PATIENT
  Sex: Female
  Weight: 72.11 kg

DRUGS (1)
  1. NUVARING [Suspect]
     Active Substance: ETHINYL ESTRADIOL\ETONOGESTREL
     Indication: CONTRACEPTION
     Dosage: 0.12/0.015 MG DALIY, IN PLACE CONTINUOUSLY FOR THREE WEEKS AND THEN REMOVED FOR A ONE WEEK BREAK
     Route: 067
     Dates: start: 20150819

REACTIONS (3)
  - Pulmonary embolism [Unknown]
  - Pain in extremity [Unknown]
  - Hypoaesthesia [Unknown]

NARRATIVE: CASE EVENT DATE: 2015
